FAERS Safety Report 12603622 (Version 1)
Quarter: 2016Q3

REPORT INFORMATION
  Report Type: Spontaneous
  Country: US (occurrence: US)
  Receive Date: 20160728
  Receipt Date: 20160728
  Transmission Date: 20161109
  Serious: Yes (Other)
  Sender: FDA-Public Use
  Company Number: US-009507513-1607USA009410

PATIENT
  Sex: Female

DRUGS (1)
  1. NEXPLANON [Suspect]
     Active Substance: ETONOGESTREL
     Indication: CONTRACEPTION
     Dosage: 1 ROD EVERY 3 YEARS, IN THE ARM
     Dates: start: 20160621, end: 20160707

REACTIONS (8)
  - Device deployment issue [Recovered/Resolved]
  - Complication of device removal [Recovered/Resolved]
  - Device difficult to use [Recovered/Resolved]
  - Complication associated with device [Recovered/Resolved]
  - Paraesthesia [Recovered/Resolved]
  - Device embolisation [Recovered/Resolved]
  - Implant site pain [Recovered/Resolved]
  - Surgery [Recovering/Resolving]

NARRATIVE: CASE EVENT DATE: 2016
